FAERS Safety Report 23723226 (Version 1)
Quarter: 2024Q2

REPORT INFORMATION
  Report Type: Spontaneous
  Country: US (occurrence: US)
  Receive Date: 20240409
  Receipt Date: 20240409
  Transmission Date: 20240715
  Serious: No
  Sender: FDA-Public Use
  Company Number: US-HISAMITSU-2023-US-013511

PATIENT
  Age: 57 Year
  Sex: Female
  Weight: 90.72 kg

DRUGS (5)
  1. ALLOPURINOL [Concomitant]
     Active Substance: ALLOPURINOL
  2. CYMBALTA [Concomitant]
     Active Substance: DULOXETINE HYDROCHLORIDE
  3. LYRICA [Concomitant]
     Active Substance: PREGABALIN
  4. LORTAB [Concomitant]
     Active Substance: ACETAMINOPHEN\HYDROCODONE BITARTRATE
  5. SALONPAS PAIN RELIEF [Suspect]
     Active Substance: MENTHOL\METHYL SALICYLATE
     Indication: Analgesic therapy
     Dosage: 1 PATCH APPLIED TO BACK FOR 4 HOURS
     Route: 061
     Dates: start: 20230515, end: 20230515

REACTIONS (1)
  - Application site burn [Unknown]

NARRATIVE: CASE EVENT DATE: 20230515
